FAERS Safety Report 5986175-1 (Version None)
Quarter: 2008Q4

REPORT INFORMATION
  Report Type: 
  Country: None (occurrence: None)
  Receive Date: 20081209
  Receipt Date: 20081202
  Transmission Date: 20090506
  Serious: Yes (Other)
  Sender: FDA-Public Use
  Company Number: US-JNJCH-2008056273

PATIENT
  Age: 58 Year
  Sex: Male
  Weight: 102.1 kg

DRUGS (1)
  1. SUDAFED PE SINUS HEADACHE CAPLET [Suspect]
     Indication: SINUS HEADACHE
     Dosage: TEXT:1 TABLET 1 TIME A DAY
     Route: 048
     Dates: start: 20061116, end: 20061116

REACTIONS (3)
  - HYPERTENSION [None]
  - METAMORPHOPSIA [None]
  - OPTIC NERVE DISORDER [None]
